FAERS Safety Report 5538146-7 (Version None)
Quarter: 2007Q4

REPORT INFORMATION
  Report Type: 
  Country: None (occurrence: None)
  Receive Date: 20071207
  Receipt Date: 20061127
  Transmission Date: 20080405
  Serious: No
  Sender: FDA-Public Use
  Company Number: US-AMGEN-KDL198529

PATIENT
  Sex: Female
  Weight: 80.4 kg

DRUGS (12)
  1. ENBREL [Suspect]
     Indication: RHEUMATOID ARTHRITIS
     Route: 058
     Dates: start: 20061005
  2. METHOTREXATE [Concomitant]
  3. PLAQUENIL [Concomitant]
  4. FOLIC ACID [Concomitant]
  5. MEDROL [Concomitant]
  6. SYNTHROID [Concomitant]
  7. DYAZIDE [Concomitant]
  8. VERAPAMIL HYDROCHLORIDE [Concomitant]
  9. NASACORT [Concomitant]
  10. PRILOSEC [Concomitant]
  11. OMEGA 3 [Concomitant]
  12. VITAMIN CAP [Concomitant]

REACTIONS (2)
  - INJECTION SITE ERYTHEMA [None]
  - INJECTION SITE PAIN [None]
